FAERS Safety Report 4300337-0 (Version None)
Quarter: 2004Q1

REPORT INFORMATION
  Report Type: 
  Country: None (occurrence: None)
  Receive Date: 20040218
  Receipt Date: 20040206
  Transmission Date: 20041129
  Serious: Yes (Other)
  Sender: FDA-Public Use
  Company Number: 2004002722

PATIENT
  Sex: Male

DRUGS (4)
  1. DILANTIN KAPSEAL [Suspect]
     Indication: GRAND MAL CONVULSION
     Dosage: 300 MG (DAILY), ORAL
     Route: 048
     Dates: start: 19941001, end: 20040101
  2. ANTIBIOTICS [Suspect]
     Indication: ILL-DEFINED DISORDER
  3. OBETROL [Concomitant]
  4. CITALOPRAM HYDROBROMIDE (CITALOPRAM HYDROBROMIDE) [Concomitant]

REACTIONS (8)
  - AURA [None]
  - DRUG LEVEL INCREASED [None]
  - FEELING ABNORMAL [None]
  - GRAND MAL CONVULSION [None]
  - HYPOGLYCAEMIA [None]
  - PHARMACEUTICAL PRODUCT COMPLAINT [None]
  - SENSORY DISTURBANCE [None]
  - WEIGHT INCREASED [None]
